FAERS Safety Report 6391276-2 (Version None)
Quarter: 2009Q4

REPORT INFORMATION
  Report Type: 
  Country: None (occurrence: None)
  Receive Date: 20091007
  Receipt Date: 20090922
  Transmission Date: 20100525
  Serious: No
  Sender: FDA-Public Use
  Company Number: PHHY2009MX28098

PATIENT
  Sex: Female

DRUGS (8)
  1. ACLASTA [Suspect]
     Indication: OSTEOPOROSIS
     Dosage: 5MG/100 ML PER YEAR
     Dates: start: 20070629
  2. ACLASTA [Suspect]
     Dosage: 5MG/100ML PER YEAR
     Dates: start: 20080616
  3. ACLASTA [Suspect]
     Dosage: 5MG/100 ML PER YEAR
     Dates: start: 20090707
  4. EVISTA [Concomitant]
     Indication: OSTEOPOROSIS
     Dosage: 1 TABLET PER DAY
     Dates: start: 20050708
  5. RANISEN [Concomitant]
     Indication: ACIDOSIS
     Dosage: 1 TABLET PER DAY
  6. RIOPAN [Concomitant]
     Indication: ACIDOSIS
     Dosage: 1 PACKAGE PER DAY
  7. CALCIUM [Concomitant]
     Dosage: UNK
     Dates: start: 20090101
  8. MIACALCIN [Concomitant]
     Dosage: UNK
     Dates: start: 20090101

REACTIONS (4)
  - BLOOD CALCIUM DECREASED [None]
  - BONE PAIN [None]
  - MYALGIA [None]
  - PYREXIA [None]
